FAERS Safety Report 6757255-8 (Version None)
Quarter: 2010Q2

REPORT INFORMATION
  Report Type: 
  Country: None (occurrence: None)
  Receive Date: 20100607
  Receipt Date: 20100526
  Transmission Date: 20101027
  Serious: No
  Sender: FDA-Public Use
  Company Number: US-BIOGENIDEC-2010BI015563

PATIENT
  Age: 30 Year
  Sex: Female

DRUGS (2)
  1. TYSABRI [Suspect]
     Indication: MULTIPLE SCLEROSIS
     Route: 042
     Dates: start: 20080919, end: 20090318
  2. TYSABRI [Suspect]
     Route: 042
     Dates: start: 20100408

REACTIONS (4)
  - HYPERSENSITIVITY [None]
  - PRURITUS GENERALISED [None]
  - RASH GENERALISED [None]
  - URTICARIA [None]
